FAERS Safety Report 23428168 (Version 1)
Quarter: 2024Q1

REPORT INFORMATION
  Report Type: Spontaneous
  Country: US (occurrence: None)
  Receive Date: 20240120
  Receipt Date: 20240120
  Transmission Date: 20240410
  Serious: Yes (Other)
  Sender: FDA-Public Use
  Company Number: None

PATIENT
  Age: 51 Year
  Sex: Female

DRUGS (15)
  1. TEZSPIRE [Suspect]
     Active Substance: TEZEPELUMAB-EKKO
     Indication: Asthma
     Dosage: OTHER QUANTITY : 210/1.91 MG/ML;?FREQUENCY : MONTHLY;?
     Route: 058
     Dates: start: 20231114
  2. ABILIFY [Concomitant]
     Active Substance: ARIPIPRAZOLE
  3. ADVAIR DISKU AER [Concomitant]
  4. ALBUTEROL AER HFA [Concomitant]
  5. ALBUTEROL NEB 0.083% [Concomitant]
  6. ARIPIPRAZOLE [Concomitant]
     Active Substance: ARIPIPRAZOLE
  7. BREO ELLIPTA INH [Concomitant]
  8. MONTELUKAST [Concomitant]
     Active Substance: MONTELUKAST SODIUM
  9. PAROXETINE [Concomitant]
     Active Substance: PAROXETINE
  10. PAROXETINE [Concomitant]
     Active Substance: PAROXETINE
  11. PREDNISONE [Concomitant]
     Active Substance: PREDNISONE
  12. SPIRIVA AER [Concomitant]
  13. TRINTELLIX [Concomitant]
     Active Substance: VORTIOXETINE HYDROBROMIDE
  14. TRINTELLIX [Concomitant]
     Active Substance: VORTIOXETINE HYDROBROMIDE
  15. VYVANSE [Concomitant]
     Active Substance: LISDEXAMFETAMINE DIMESYLATE

REACTIONS (2)
  - Respiratory syncytial virus infection [None]
  - Asthma [None]

NARRATIVE: CASE EVENT DATE: 20240101
